FAERS Safety Report 6015820-X (Version None)
Quarter: 2008Q4

REPORT INFORMATION
  Report Type: 
  Country: None (occurrence: None)
  Receive Date: 20081222
  Receipt Date: 20081219
  Transmission Date: 20090506
  Serious: Yes (Congenital Anomaly)
  Sender: FDA-Public Use
  Company Number: A0680385A

PATIENT
  Sex: Female

DRUGS (5)
  1. PAXIL [Suspect]
     Indication: DEPRESSION
     Dosage: 20MG PER DAY
     Dates: start: 20000101, end: 20020101
  2. PAXIL CR [Suspect]
     Indication: DEPRESSION
     Dosage: 37.5MG PER DAY
     Dates: start: 20020101, end: 20040101
  3. SUDAFED 12 HOUR [Concomitant]
  4. MACROBID [Concomitant]
  5. VITAMIN TAB [Concomitant]

REACTIONS (8)
  - ATRIAL SEPTAL DEFECT [None]
  - CARDIAC MURMUR [None]
  - CARDIOVASCULAR DISORDER [None]
  - DRUG EXPOSURE DURING PREGNANCY [None]
  - HYPOTENSION [None]
  - KIDNEY INFECTION [None]
  - PULMONARY VALVE STENOSIS [None]
  - UNDERWEIGHT [None]
